FAERS Safety Report 18559377 (Version 1)
Quarter: 2020Q4

REPORT INFORMATION
  Report Type: Spontaneous
  Country: SE (occurrence: SE)
  Receive Date: 20201130
  Receipt Date: 20201130
  Transmission Date: 20210114
  Serious: Yes (Other)
  Sender: FDA-Public Use
  Company Number: SE-ELI_LILLY_AND_COMPANY-SE202011008614

PATIENT
  Age: 27 Year
  Sex: Male

DRUGS (3)
  1. ZYPADHERA [Suspect]
     Active Substance: OLANZAPINE PAMOATE
     Indication: PRODUCT USED FOR UNKNOWN INDICATION
     Dosage: UNK UNK, UNKNOWN
     Route: 065
  2. ZYPADHERA [Suspect]
     Active Substance: OLANZAPINE PAMOATE
     Indication: PRODUCT USED FOR UNKNOWN INDICATION
     Dosage: UNK UNK, UNKNOWN
     Route: 065
  3. ZYPADHERA [Suspect]
     Active Substance: OLANZAPINE PAMOATE
     Indication: PRODUCT USED FOR UNKNOWN INDICATION
     Dosage: UNK UNK, UNKNOWN
     Route: 065

REACTIONS (21)
  - Depression [Unknown]
  - Restless legs syndrome [Unknown]
  - Dystonia [Unknown]
  - Vision blurred [Unknown]
  - Tinnitus [Unknown]
  - Anxiety [Unknown]
  - Tremor [Unknown]
  - Post-traumatic stress disorder [Unknown]
  - Psychotic disorder [Unknown]
  - Cognitive disorder [Unknown]
  - Weight increased [Unknown]
  - Agitation [Unknown]
  - Erectile dysfunction [Unknown]
  - Muscle spasms [Unknown]
  - Dysphemia [Unknown]
  - Confusional state [Unknown]
  - Tardive dyskinesia [Unknown]
  - Amnesia [Unknown]
  - Dysarthria [Unknown]
  - Disorientation [Unknown]
  - Dyskinesia [Unknown]

NARRATIVE: CASE EVENT DATE: 20201001
